FAERS Safety Report 8122969-4 (Version None)
Quarter: 2012Q1

REPORT INFORMATION
  Report Type: 
  Country: None (occurrence: None)
  Receive Date: 20120208
  Receipt Date: 20120201
  Transmission Date: 20120608
  Serious: Yes (Hospitalization, Other)
  Sender: FDA-Public Use
  Company Number: US-ABBOTT-11P-163-0886699-00

PATIENT
  Age: 69 Year
  Sex: Male

DRUGS (6)
  1. DIGESTIVE ENZYMES [Concomitant]
     Indication: PRODUCT USED FOR UNKNOWN INDICATION
     Dosage: DAILY
  2. HUMIRA [Suspect]
     Indication: CROHN'S DISEASE
     Dosage: 160 MG LOADING DOSE
     Dates: start: 20111220, end: 20111220
  3. CIPROFLOXACIN [Concomitant]
     Indication: PRODUCT USED FOR UNKNOWN INDICATION
  4. HUMIRA [Suspect]
     Dates: start: 20120129
  5. HUMIRA [Suspect]
     Dosage: 80 MG LOADING DOSE
     Dates: start: 20120102, end: 20120102
  6. PREDNISONE TAB [Concomitant]
     Indication: PRODUCT USED FOR UNKNOWN INDICATION

REACTIONS (18)
  - ABDOMINAL PAIN [None]
  - ENTEROVESICAL FISTULA [None]
  - INJECTION SITE PAIN [None]
  - ABDOMINAL PAIN LOWER [None]
  - GASTRITIS [None]
  - FATIGUE [None]
  - ABDOMINAL DISTENSION [None]
  - ASTHENIA [None]
  - ENDOSCOPY ABNORMAL [None]
  - CONSTIPATION [None]
  - GASTROINTESTINAL SOUNDS ABNORMAL [None]
  - DUODENITIS [None]
  - NAUSEA [None]
  - INJECTION SITE HAEMORRHAGE [None]
  - DIARRHOEA [None]
  - CROHN'S DISEASE [None]
  - INJECTION SITE HAEMATOMA [None]
  - DYSPNOEA [None]
